FAERS Safety Report 13409831 (Version 2)
Quarter: 2017Q2

REPORT INFORMATION
  Report Type: Spontaneous
  Country: US (occurrence: US)
  Receive Date: 20170406
  Receipt Date: 20170411
  Transmission Date: 20170830
  Serious: No
  Sender: FDA-Public Use
  Company Number: US-PFIZER INC-2017143088

PATIENT
  Age: 54 Year
  Sex: Female
  Weight: 48.53 kg

DRUGS (1)
  1. FLECTOR [Suspect]
     Active Substance: DICLOFENAC EPOLAMINE
     Indication: BURSITIS
     Dosage: 1.3 %, 1X/DAY
     Dates: start: 2016

REACTIONS (1)
  - Product use in unapproved indication [Unknown]
